FAERS Safety Report 7222689-4 (Version None)
Quarter: 2011Q1

REPORT INFORMATION
  Report Type: 
  Country: None (occurrence: None)
  Receive Date: 20110106
  Receipt Date: 20110106
  Transmission Date: 20110831
  Serious: Yes (Life-Threatening, Hospitalization, Other)
  Sender: FDA-Public Use
  Company Number: None

PATIENT
  Age: 41 Year
  Sex: Male
  Weight: 79.3795 kg

DRUGS (2)
  1. REQUIP [Suspect]
     Indication: NERVOUS SYSTEM DISORDER
     Dosage: ONE MG WAS T.I.D. PO
     Route: 048
     Dates: start: 20101201, end: 20101203
  2. REQUIP [Suspect]
     Indication: SLEEP ATTACKS
     Dosage: ONE MG WAS T.I.D. PO
     Route: 048
     Dates: start: 20101201, end: 20101203

REACTIONS (2)
  - CONVULSION [None]
  - SLEEP ATTACKS [None]
